FAERS Safety Report 10071925 (Version 1)
Quarter: 2014Q2

REPORT INFORMATION
  Report Type: Spontaneous
  Country: NL (occurrence: NL)
  Receive Date: 20140411
  Receipt Date: 20140411
  Transmission Date: 20141212
  Serious: Yes (Other)
  Sender: FDA-Public Use
  Company Number: NL-AMGEN-NLDSP2010014003

PATIENT
  Age: 17 Year
  Sex: Female

DRUGS (1)
  1. NEULASTA [Suspect]
     Indication: PROPHYLAXIS
     Dosage: 6 MG, 1X2W
     Route: 058
     Dates: start: 20100507, end: 20100514

REACTIONS (2)
  - Eye swelling [Unknown]
  - Pharyngeal oedema [Unknown]
